FAERS Safety Report 13179060 (Version 1)
Quarter: 2017Q1

REPORT INFORMATION
  Report Type: Spontaneous
  Country: US (occurrence: US)
  Receive Date: 20170202
  Receipt Date: 20170202
  Transmission Date: 20170428
  Serious: Yes (Death)
  Sender: FDA-Public Use
  Company Number: US-SCIEGEN PHARMACEUTICALS INC-2017SCILIT00021

PATIENT
  Sex: Male

DRUGS (4)
  1. ZOLPIDEM [Suspect]
     Active Substance: ZOLPIDEM\ZOLPIDEM TARTRATE
     Indication: INSOMNIA
     Dosage: 5 MG, UNK
     Route: 065
  2. ALPRAZOLAM. [Suspect]
     Active Substance: ALPRAZOLAM
     Indication: PRODUCT USED FOR UNKNOWN INDICATION
     Dosage: UNKNOWN
     Route: 065
  3. FLONASE [Concomitant]
     Active Substance: FLUTICASONE PROPIONATE
     Indication: PRODUCT USED FOR UNKNOWN INDICATION
     Dosage: UNKNOWN
     Route: 065
  4. ATORVASTATIN CALCIUM. [Suspect]
     Active Substance: ATORVASTATIN CALCIUM
     Indication: HYPERLIPIDAEMIA
     Dosage: 10 MG, UNK
     Route: 065

REACTIONS (18)
  - Depression [Fatal]
  - Irritability [Unknown]
  - Completed suicide [Fatal]
  - Abnormal behaviour [Fatal]
  - Insomnia [Unknown]
  - Aggression [Unknown]
  - Eczema [Unknown]
  - Activities of daily living impaired [Unknown]
  - Myalgia [Unknown]
  - Personality change [Fatal]
  - Paranoia [Unknown]
  - Amnesia [Unknown]
  - Memory impairment [Unknown]
  - Lethargy [Unknown]
  - Stress at work [Unknown]
  - Impatience [Unknown]
  - Hypoacusis [Unknown]
  - Malaise [Unknown]
